FAERS Safety Report 4950386-4 (Version None)
Quarter: 2006Q1

REPORT INFORMATION
  Report Type: 
  Country: None (occurrence: None)
  Receive Date: 20060315
  Receipt Date: 20060303
  Transmission Date: 20060701
  Serious: Yes (Hospitalization, Other)
  Sender: FDA-Public Use
  Company Number: 2006019006

PATIENT
  Age: 35 Year
  Sex: Male
  Weight: 88 kg

DRUGS (4)
  1. ZELDOX (CAPSULES)  (ZIPRASIDONE) [Suspect]
     Indication: PSYCHOTIC DISORDER
     Dosage: 120 MG (60 MG, 2 IN 1 D), ORAL; SEE IMAGE
     Route: 048
     Dates: start: 20040113, end: 20050304
  2. ZELDOX (CAPSULES)  (ZIPRASIDONE) [Suspect]
     Indication: PSYCHOTIC DISORDER
     Dosage: 120 MG (60 MG, 2 IN 1 D), ORAL; SEE IMAGE
     Route: 048
     Dates: start: 20050304, end: 20050506
  3. FLUOXETINE [Concomitant]
  4. UNAKALM (KETAZOLAM) [Concomitant]

REACTIONS (5)
  - DYSPNOEA [None]
  - RALES [None]
  - TIC [None]
  - TONSILLITIS [None]
  - TREMOR [None]
